FAERS Safety Report 10057243 (Version 1)
Quarter: 2014Q2

REPORT INFORMATION
  Report Type: Spontaneous
  Country: GB (occurrence: GB)
  Receive Date: 20140403
  Receipt Date: 20140403
  Transmission Date: 20141212
  Serious: Yes (Other)
  Sender: FDA-Public Use
  Company Number: GB-UCBSA-116459

PATIENT
  Age: 37 Year
  Sex: Female
  Weight: 126.8 kg

DRUGS (5)
  1. VIMPAT [Suspect]
     Indication: EPILEPSY
     Route: 048
     Dates: start: 20131007
  2. LORAZEPAM [Concomitant]
     Dosage: AS NECESSARY
  3. LYRICA [Concomitant]
  4. METFORMIN [Concomitant]
  5. TEGRETOL RETARD [Concomitant]

REACTIONS (7)
  - Agitation [Unknown]
  - Body temperature increased [Not Recovered/Not Resolved]
  - Epilepsy [Not Recovered/Not Resolved]
  - Trichorrhexis [Not Recovered/Not Resolved]
  - Alopecia [Not Recovered/Not Resolved]
  - Fatigue [Unknown]
  - Drug ineffective [Unknown]
